FAERS Safety Report 11529170 (Version 2)
Quarter: 2015Q4

REPORT INFORMATION
  Report Type: Report from Study
  Country: US (occurrence: US)
  Receive Date: 20150921
  Receipt Date: 20151028
  Transmission Date: 20160304
  Serious: Yes (Other)
  Sender: FDA-Public Use
  Company Number: PHEH2015US018055

PATIENT
  Age: 56 Year
  Sex: Female

DRUGS (1)
  1. GILENYA [Suspect]
     Active Substance: FINGOLIMOD HYDROCHLORIDE
     Indication: MULTIPLE SCLEROSIS
     Dosage: 0.5 MG, QD
     Route: 048

REACTIONS (4)
  - Intentional underdose [Unknown]
  - Generalised tonic-clonic seizure [Not Recovered/Not Resolved]
  - Loss of consciousness [Unknown]
  - Muscle rigidity [Unknown]

NARRATIVE: CASE EVENT DATE: 20150831
